FAERS Safety Report 9305657 (Version 1)
Quarter: 2013Q2

REPORT INFORMATION
  Report Type: Spontaneous
  Country: GB (occurrence: GB)
  Receive Date: 20130523
  Receipt Date: 20130523
  Transmission Date: 20140414
  Serious: Yes (Death, Other)
  Sender: FDA-Public Use
  Company Number: GB-PFIZER INC-2013155312

PATIENT
  Sex: Female

DRUGS (3)
  1. MORPHINE SULFATE [Suspect]
     Dosage: UNK
     Route: 048
  2. ORAMORPH [Suspect]
     Dosage: UNK
     Route: 065
  3. ZEPOSE [Suspect]
     Dosage: UNK
     Route: 065

REACTIONS (2)
  - Death [Fatal]
  - Drug diversion [Fatal]
